FAERS Safety Report 20380035 (Version 1)
Quarter: 2022Q1

REPORT INFORMATION
  Report Type: Spontaneous
  Country: DE (occurrence: DE)
  Receive Date: 20220126
  Receipt Date: 20220126
  Transmission Date: 20220424
  Serious: Yes (Other)
  Sender: FDA-Public Use
  Company Number: DE-009507513-1905DEU006882

PATIENT

DRUGS (6)
  1. PEMETREXED [Suspect]
     Active Substance: PEMETREXED
     Indication: Product used for unknown indication
     Dosage: 4 CYCLES
     Route: 065
     Dates: start: 2018, end: 201812
  2. CARBOPLATIN [Suspect]
     Active Substance: CARBOPLATIN
     Indication: Product used for unknown indication
     Dosage: 4 CYCLES
     Route: 065
     Dates: start: 2018, end: 201812
  3. PACLITAXEL [Suspect]
     Active Substance: PACLITAXEL
     Indication: Product used for unknown indication
     Dosage: 3 CYCLES
     Route: 065
     Dates: start: 2019, end: 2019
  4. KEYTRUDA [Suspect]
     Active Substance: PEMBROLIZUMAB
     Indication: Non-small cell lung cancer stage IV
     Dosage: MONOTHERAPY
     Route: 065
     Dates: start: 2018
  5. KEYTRUDA [Suspect]
     Active Substance: PEMBROLIZUMAB
     Dosage: MONOTHERAPY
     Route: 065
     Dates: start: 2018, end: 2018
  6. KEYTRUDA [Suspect]
     Active Substance: PEMBROLIZUMAB
     Dosage: UNK, UNKNOWN
     Route: 065
     Dates: end: 201905

REACTIONS (11)
  - Cholangitis [Unknown]
  - Vena cava thrombosis [Unknown]
  - Streptococcal sepsis [Unknown]
  - Neuropathy peripheral [Unknown]
  - Malignant neoplasm progression [Unknown]
  - Malignant neoplasm progression [Unknown]
  - Malignant neoplasm progression [Unknown]
  - Chest pain [Unknown]
  - Drug intolerance [Unknown]
  - Arthralgia [Unknown]
  - Abdominal pain upper [Unknown]

NARRATIVE: CASE EVENT DATE: 20180101
